FAERS Safety Report 17059638 (Version 1)
Quarter: 2019Q4

REPORT INFORMATION
  Report Type: Spontaneous
  Country: US (occurrence: US)
  Receive Date: 20191121
  Receipt Date: 20191121
  Transmission Date: 20200122
  Serious: No
  Sender: FDA-Public Use
  Company Number: US-NOVOPROD-630383

PATIENT
  Age: 54 Year
  Sex: Male

DRUGS (4)
  1. NOVOLOG [Suspect]
     Active Substance: INSULIN ASPART
     Dosage: 30 U, UNK
     Route: 058
     Dates: start: 20181029, end: 20181029
  2. LANTUS [Concomitant]
     Active Substance: INSULIN GLARGINE
     Indication: TYPE 1 DIABETES MELLITUS
     Dosage: 60 U, UNK
     Route: 058
     Dates: start: 20091029
  3. NOVOLOG [Suspect]
     Active Substance: INSULIN ASPART
     Indication: TYPE 1 DIABETES MELLITUS
     Dosage: 23 U, UNK
     Route: 058
     Dates: start: 201804, end: 20181029
  4. NOVOLOG [Suspect]
     Active Substance: INSULIN ASPART
     Dosage: 38 U, UNK
     Route: 058
     Dates: start: 20181029

REACTIONS (3)
  - Hyperhidrosis [Not Recovered/Not Resolved]
  - Blood glucose increased [Recovered/Resolved]
  - Product quality issue [Recovered/Resolved]

NARRATIVE: CASE EVENT DATE: 20181029
